FAERS Safety Report 9160826 (Version 1)
Quarter: 2013Q1

REPORT INFORMATION
  Report Type: Spontaneous
  Country: GB (occurrence: None)
  Receive Date: 20130220
  Receipt Date: 20130220
  Transmission Date: 20140127
  Serious: Yes (Hospitalization)
  Sender: FDA-Public Use
  Company Number: GB-1196586

PATIENT
  Age: 83 Year
  Sex: Female

DRUGS (7)
  1. FLUORESCITE [Suspect]
     Indication: ANGIOGRAM
     Route: 040
     Dates: start: 20130109, end: 20130109
  2. ASPIRIN [Concomitant]
  3. BENDROFLUMETHIAZIDE [Concomitant]
  4. CITALOPRAM [Concomitant]
  5. DOXAZOSIN [Concomitant]
  6. OMEPRAZOLE [Concomitant]
  7. TRAZODONE [Concomitant]

REACTIONS (4)
  - Anaphylactic reaction [None]
  - Pruritus [None]
  - Swelling face [None]
  - Rash [None]
